FAERS Safety Report 4591092-8 (Version None)
Quarter: 2005Q1

REPORT INFORMATION
  Report Type: 
  Country: None (occurrence: None)
  Receive Date: 20050222
  Receipt Date: 20050222
  Transmission Date: 20050727
  Serious: No
  Sender: FDA-Public Use
  Company Number: None

PATIENT
  Age: 68 Year
  Sex: Female
  Weight: 95.2554 kg

DRUGS (11)
  1. KETEK [Suspect]
     Indication: BRONCHITIS
     Dosage: 400 ONCE ORAL
     Route: 048
     Dates: start: 20050119, end: 20050124
  2. AMARYL [Concomitant]
  3. ACTOS [Concomitant]
  4. ALTACE [Concomitant]
  5. SYNTHROID [Concomitant]
  6. METFORMIN [Concomitant]
  7. EVISTA [Concomitant]
  8. WELLBUTRIN [Concomitant]
  9. MIRAPEX [Concomitant]
  10. ADVAIR [Concomitant]
  11. COMBIVENT [Concomitant]

REACTIONS (1)
  - LIVER FUNCTION TEST ABNORMAL [None]
